FAERS Safety Report 11070205 (Version 1)
Quarter: 2015Q2

REPORT INFORMATION
  Report Type: Spontaneous
  Country: US (occurrence: US)
  Receive Date: 20150427
  Receipt Date: 20150427
  Transmission Date: 20150821
  Serious: No
  Sender: FDA-Public Use
  Company Number: US-MALLINCKRODT-T201404034

PATIENT

DRUGS (1)
  1. HYDROCODONE/ACETAMINOPHEN [Suspect]
     Active Substance: ACETAMINOPHEN\HYDROCODONE
     Indication: PAIN
     Dosage: 7.5/325 MG, UNK
     Route: 048

REACTIONS (8)
  - Drug ineffective [Unknown]
  - Mood swings [Unknown]
  - Pruritus generalised [Unknown]
  - Irritability [Unknown]
  - Emotional distress [Unknown]
  - Muscle twitching [Unknown]
  - Heart rate increased [Unknown]
  - Asthenia [Unknown]
